FAERS Safety Report 6507884-1 (Version None)
Quarter: 2009Q4

REPORT INFORMATION
  Report Type: 
  Country: None (occurrence: None)
  Receive Date: 20091221
  Receipt Date: 20091208
  Transmission Date: 20100525
  Serious: Yes (Hospitalization, Disabling)
  Sender: FDA-Public Use
  Company Number: A0835712A

PATIENT
  Age: 68 Year
  Sex: Female

DRUGS (1)
  1. AVANDIA [Suspect]
     Route: 048

REACTIONS (5)
  - ABASIA [None]
  - AMNESIA [None]
  - CEREBROVASCULAR ACCIDENT [None]
  - DISABILITY [None]
  - DYSSTASIA [None]
